FAERS Safety Report 6163739-6 (Version None)
Quarter: 2009Q2

REPORT INFORMATION
  Report Type: 
  Country: None (occurrence: None)
  Receive Date: 20090420
  Receipt Date: 20090408
  Transmission Date: 20091009
  Serious: Yes (Other)
  Sender: FDA-Public Use
  Company Number: 2009US000824

PATIENT
  Age: 44 Year
  Weight: 139.7 kg

DRUGS (6)
  1. LEXISCAN [Suspect]
     Indication: SCAN MYOCARDIAL PERFUSION
     Dosage: 0.4 MG, IV NOS
     Route: 042
     Dates: start: 20090302, end: 20090302
  2. INSULIN (INSULIN) [Concomitant]
  3. PROZAC [Concomitant]
  4. LISINOPRIL [Concomitant]
  5. VYTORIN [Concomitant]
  6. MULTIVITAMIN [Concomitant]

REACTIONS (1)
  - HYPERTENSION [None]
